FAERS Safety Report 5774236-1 (Version None)
Quarter: 2008Q2

REPORT INFORMATION
  Report Type: 
  Country: None (occurrence: None)
  Receive Date: 20080616
  Receipt Date: 20080609
  Transmission Date: 20081010
  Serious: Yes (Life-Threatening, Hospitalization, Disabling, Other)
  Sender: FDA-Public Use
  Company Number: US-ABBOTT-07P-163-0361331-00

PATIENT
  Sex: Male
  Weight: 76.4 kg

DRUGS (26)
  1. RITONAVIR SOFT GELATIN CAPSULES [Suspect]
     Indication: HIV INFECTION
     Route: 048
     Dates: start: 20060426, end: 20070227
  2. TMC125 (BLINDED) [Concomitant]
     Indication: HIV INFECTION
     Route: 048
     Dates: start: 20060426, end: 20070227
  3. LAMIVUDINE + ZIDOVUDINE [Concomitant]
     Indication: DRUG USE FOR UNKNOWN INDICATION
     Route: 048
     Dates: start: 20040929
  4. TRIAMTERENE [Concomitant]
     Indication: HYPERTENSION
     Route: 048
  5. K-DUR 10 [Concomitant]
     Indication: MINERAL SUPPLEMENTATION
     Route: 048
  6. BACTRIM [Concomitant]
     Indication: ANTIFUNGAL PROPHYLAXIS
     Route: 048
  7. AZITHROMYCIN [Concomitant]
     Indication: OPPORTUNISTIC INFECTION PROPHYLAXIS
     Route: 048
  8. CLOTRIMAZOLE [Concomitant]
     Indication: CANDIDIASIS
     Route: 048
  9. NYSTATIN [Concomitant]
     Indication: CANDIDIASIS
     Route: 048
  10. MORPHINE SULFATE [Concomitant]
     Indication: PAIN MANAGEMENT
     Route: 048
  11. RANITIDINE HYDROCHLORIDE [Concomitant]
     Indication: DUODENITIS
     Route: 048
  12. TESTOSTERONE [Concomitant]
     Indication: ENERGY INCREASED
     Route: 061
  13. METHYLPHENIDATE HCL [Concomitant]
     Indication: ENERGY INCREASED
     Route: 048
  14. CLONAZEPAM [Concomitant]
     Indication: ANXIETY
     Route: 048
  15. FLUOXETINE HYDROCHLORIDE [Concomitant]
     Indication: DEPRESSION
     Route: 048
  16. BUPROPION HYDROCHLORIDE [Concomitant]
     Indication: DEPRESSION
     Route: 048
  17. TRAZODONE HCL [Concomitant]
     Indication: DEPRESSION
     Route: 048
  18. MORPHINE SULFATE [Concomitant]
     Route: 048
     Dates: start: 20060426
  19. LIDODERM [Concomitant]
     Indication: PAIN MANAGEMENT
     Route: 061
     Dates: start: 20060426
  20. PROCHLORPERAZINE EDISYLATE [Concomitant]
     Indication: NAUSEA
     Route: 054
     Dates: start: 20060627
  21. GABAPENTIN [Concomitant]
     Indication: DRUG USE FOR UNKNOWN INDICATION
     Route: 048
     Dates: start: 20061130
  22. OXYCOCET [Concomitant]
     Indication: DRUG USE FOR UNKNOWN INDICATION
     Route: 048
     Dates: start: 20061130
  23. FLUCONAZOLE [Concomitant]
     Indication: ANTIFUNGAL PROPHYLAXIS
     Route: 048
     Dates: start: 20070207
  24. LOMOTIL [Concomitant]
     Indication: DIARRHOEA
     Route: 048
  25. TENOFOVIR DISOPROXIL FUMARATE [Concomitant]
     Indication: HIV INFECTION
     Dates: end: 20070202
  26. TMC114 [Concomitant]
     Indication: HIV INFECTION
     Route: 048
     Dates: start: 20060426, end: 20070227

REACTIONS (5)
  - ACUTE RESPIRATORY DISTRESS SYNDROME [None]
  - CARDIAC FAILURE CONGESTIVE [None]
  - HIP FRACTURE [None]
  - HIV INFECTION [None]
  - RENAL FAILURE [None]
